FAERS Safety Report 4410961-2 (Version None)
Quarter: 2004Q3

REPORT INFORMATION
  Report Type: 
  Country: None (occurrence: None)
  Receive Date: 20040726
  Receipt Date: 20040712
  Transmission Date: 20050211
  Serious: Yes (Hospitalization, Other)
  Sender: FDA-Public Use
  Company Number: HQWYE845201JUL04

PATIENT
  Age: 19 Year
  Sex: Female
  Weight: 55 kg

DRUGS (16)
  1. RAPAMUNE [Suspect]
     Indication: IMMUNOSUPPRESSANT DRUG THERAPY
     Dosage: SEE IMAGE ORAL
     Route: 048
     Dates: start: 20030223, end: 20030101
  2. RAPAMUNE [Suspect]
     Indication: IMMUNOSUPPRESSANT DRUG THERAPY
     Dosage: SEE IMAGE ORAL
     Route: 048
     Dates: start: 20030101
  3. RAPAMUNE [Suspect]
  4. PREDNISONE [Concomitant]
  5. TACROLIMUS (TACROLIMUS) [Concomitant]
  6. CALCIUM CARBONATE (CALCIUM CARBONATE) [Concomitant]
  7. CALCITRIOL [Concomitant]
  8. NIFEDIPINE [Concomitant]
  9. RANITIDINE [Concomitant]
  10. ZYRTEC [Concomitant]
  11. MONTELUKAST (MONTELUKAST) [Concomitant]
  12. FLUTICASONE PROPIONATE [Concomitant]
  13. BACTRIM [Concomitant]
  14. VALGANCICLOVIR (VALGANCICLOVIR) [Concomitant]
  15. K-PHOS (POTASSIUM PHOSPHATE MONOBASIC) [Concomitant]
  16. ALBUTEROL [Concomitant]

REACTIONS (9)
  - BLADDER DISTENSION [None]
  - BLADDER MASS [None]
  - DYSURIA [None]
  - GASTROINTESTINAL PAIN [None]
  - HAEMATURIA [None]
  - HYDRONEPHROSIS [None]
  - INFLAMMATION [None]
  - KIDNEY TRANSPLANT REJECTION [None]
  - PYREXIA [None]
